FAERS Safety Report 6917325-8 (Version None)
Quarter: 2010Q3

REPORT INFORMATION
  Report Type: 
  Country: None (occurrence: None)
  Receive Date: 20100810
  Receipt Date: 20091002
  Transmission Date: 20110219
  Serious: No
  Sender: FDA-Public Use
  Company Number: US-PFIZER INC-2009256140

PATIENT
  Sex: Female
  Weight: 49.9 kg

DRUGS (6)
  1. ATROPINE SULFATE, DIPHENOXYLATE HCL [Suspect]
     Indication: DIARRHOEA
     Dosage: UNK
     Dates: start: 20090728, end: 20090730
  2. LOMOTIL [Suspect]
     Indication: DIARRHOEA
     Dates: start: 20090730
  3. HYDREA [Suspect]
     Dosage: UNK
     Dates: start: 19900101
  4. MYLERAN [Suspect]
  5. ACETAMINOPHEN [Concomitant]
     Dosage: UNK
  6. FIORICET [Concomitant]
     Dosage: UNK

REACTIONS (17)
  - CHEST DISCOMFORT [None]
  - DIARRHOEA [None]
  - DRY MOUTH [None]
  - DYSPHONIA [None]
  - DYSPNOEA [None]
  - EYELID OEDEMA [None]
  - FATIGUE [None]
  - FEELING COLD [None]
  - FLUSHING [None]
  - GINGIVAL SWELLING [None]
  - HEART RATE IRREGULAR [None]
  - PAIN IN EXTREMITY [None]
  - PARAESTHESIA [None]
  - SWOLLEN TONGUE [None]
  - TOTAL LUNG CAPACITY DECREASED [None]
  - VISION BLURRED [None]
  - WEIGHT DECREASED [None]
